FAERS Safety Report 6661415-4 (Version None)
Quarter: 2010Q1

REPORT INFORMATION
  Report Type: 
  Country: None (occurrence: None)
  Receive Date: 20100331
  Receipt Date: 20100319
  Transmission Date: 20100710
  Serious: No
  Sender: FDA-Public Use
  Company Number: US-JNJFOC-20100306441

PATIENT
  Sex: Female
  Weight: 112.04 kg

DRUGS (12)
  1. DURAGESIC-100 [Suspect]
     Indication: BACK PAIN
     Route: 062
  2. DURAGESIC-100 [Suspect]
     Indication: ARTHRALGIA
     Route: 062
  3. DURAGESIC-100 [Suspect]
     Route: 062
  4. TYLENOL W/ CODEINE NO. 4 [Concomitant]
     Indication: BREAKTHROUGH PAIN
     Route: 048
  5. EFFEXOR [Concomitant]
     Indication: PAIN
     Route: 048
  6. TEGRETOL [Concomitant]
     Indication: PAIN
     Route: 048
  7. AMITRIPTYLINE [Concomitant]
     Indication: PAIN
     Route: 048
  8. METFORMIN (GLUCOPHAGE) [Concomitant]
     Indication: DIABETES MELLITUS
     Route: 048
  9. JANUVIA [Concomitant]
     Indication: DIABETES MELLITUS
     Route: 048
  10. MELOXICAM [Concomitant]
     Indication: ARTHRITIS
     Route: 048
  11. LYRICA [Concomitant]
     Indication: FIBROMYALGIA
     Route: 048
  12. GLIMEPIRIDE [Concomitant]
     Indication: DIABETES MELLITUS
     Route: 048

REACTIONS (3)
  - DRUG EFFECT DECREASED [None]
  - PRODUCT ADHESION ISSUE [None]
  - WRONG TECHNIQUE IN DRUG USAGE PROCESS [None]
